FAERS Safety Report 9964414 (Version 1)
Quarter: 2014Q1

REPORT INFORMATION
  Report Type: Spontaneous
  Country: IT (occurrence: IT)
  Receive Date: 20140305
  Receipt Date: 20140305
  Transmission Date: 20141002
  Serious: Yes (Hospitalization)
  Sender: FDA-Public Use
  Company Number: IT-BAYER-2014-029460

PATIENT
  Age: 77 Year
  Sex: Male
  Weight: 79.82 kg

DRUGS (5)
  1. CARDIOASPIRIN [Suspect]
     Indication: PROPHYLAXIS
     Dosage: DAILY DOSE 1 DF
     Route: 048
     Dates: start: 20131231, end: 20140115
  2. BISOPROLOL [Concomitant]
     Dosage: DAILY DOSE 2.5 MG
     Route: 048
  3. ATORVASTATIN [Concomitant]
     Dosage: DAILY DOSE 20 MG
     Route: 048
  4. PRITOR [Concomitant]
     Dosage: DAILY DOSE 1 DF
     Route: 048
  5. GLUCOBAY [Concomitant]
     Dosage: DAILY DOSE 3 DF
     Route: 048

REACTIONS (3)
  - Subdural haematoma [Recovering/Resolving]
  - Hemiparesis [Recovering/Resolving]
  - Aphasia [Recovering/Resolving]
